FAERS Safety Report 24825832 (Version 1)
Quarter: 2025Q1

REPORT INFORMATION
  Report Type: Spontaneous
  Country: US (occurrence: US)
  Receive Date: 20250109
  Receipt Date: 20250109
  Transmission Date: 20250408
  Serious: Yes (Other)
  Sender: ALEXION PHARMACEUTICALS
  Company Number: US-ASTRAZENECA-202501GLO004226US

PATIENT
  Age: 51 Year

DRUGS (10)
  1. DURVALUMAB [Suspect]
     Active Substance: DURVALUMAB
     Indication: Gallbladder cancer
     Route: 065
  2. DURVALUMAB [Suspect]
     Active Substance: DURVALUMAB
     Route: 065
  3. DURVALUMAB [Suspect]
     Active Substance: DURVALUMAB
     Route: 065
  4. DURVALUMAB [Suspect]
     Active Substance: DURVALUMAB
     Route: 065
  5. CISPLATIN [Suspect]
     Active Substance: CISPLATIN
     Indication: Gallbladder cancer
     Route: 065
  6. CISPLATIN [Suspect]
     Active Substance: CISPLATIN
     Route: 065
  7. GEMCITABINE [Suspect]
     Active Substance: GEMCITABINE
     Indication: Gallbladder cancer
     Route: 065
  8. GEMCITABINE [Suspect]
     Active Substance: GEMCITABINE
     Route: 065
  9. IPILIMUMAB;NIVOLUMAB [Concomitant]
     Indication: Malignant neoplasm progression
     Route: 065
  10. IPILIMUMAB;NIVOLUMAB [Concomitant]
     Route: 065

REACTIONS (2)
  - Metastases to central nervous system [Unknown]
  - Malignant neoplasm progression [Unknown]
